FAERS Safety Report 8793015 (Version 1)
Quarter: 2012Q4

REPORT INFORMATION
  Report Type: 
  Country: BE (occurrence: BE)
  Receive Date: 20120917
  Receipt Date: 20120917
  Transmission Date: 20130627
  Serious: Yes (Hospitalization)
  Sender: FDA-Public Use
  Company Number: BE-PFIZER INC-2012223558

PATIENT

DRUGS (1)
  1. XALATAN [Suspect]
     Dosage: UNK
     Route: 047

REACTIONS (1)
  - Throat cancer [Unknown]
